FAERS Safety Report 19313124 (Version 1)
Quarter: 2021Q2

REPORT INFORMATION
  Report Type: Spontaneous
  Country: US (occurrence: US)
  Receive Date: 20210526
  Receipt Date: 20210526
  Transmission Date: 20210717
  Serious: Yes (Life-Threatening, Disabling, Other)
  Sender: FDA-Public Use
  Company Number: None

PATIENT
  Age: 26 Year
  Sex: Female
  Weight: 72.57 kg

DRUGS (3)
  1. ZONISAMIIDE [Concomitant]
  2. APTIOM [Concomitant]
     Active Substance: ESLICARBAZEPINE ACETATE
  3. MIRENA [Suspect]
     Active Substance: LEVONORGESTREL
     Dates: start: 20101201, end: 20140510

REACTIONS (3)
  - Migraine [None]
  - Focal dyscognitive seizures [None]
  - Generalised tonic-clonic seizure [None]

NARRATIVE: CASE EVENT DATE: 20140501
